FAERS Safety Report 25834244 (Version 1)
Quarter: 2025Q3

REPORT INFORMATION
  Report Type: Spontaneous
  Country: US (occurrence: US)
  Receive Date: 20250923
  Receipt Date: 20250923
  Transmission Date: 20251020
  Serious: No
  Sender: JOHNSON AND JOHNSON
  Company Number: US-JNJFOC-20250913490

PATIENT
  Sex: Male

DRUGS (2)
  1. RYBREVANT [Suspect]
     Active Substance: AMIVANTAMAB-VMJW
     Indication: Product used for unknown indication
     Route: 065
     Dates: start: 20250612
  2. LAZCLUZE [Suspect]
     Active Substance: LAZERTINIB
     Indication: Product used for unknown indication
     Route: 048
     Dates: start: 20250612

REACTIONS (5)
  - Fluid retention [Unknown]
  - Nail infection [Unknown]
  - Blood albumin decreased [Unknown]
  - Chromaturia [Unknown]
  - Skin disorder [Unknown]
